FAERS Safety Report 15807324 (Version 4)
Quarter: 2019Q2

REPORT INFORMATION
  Report Type: Report from Study
  Country: US (occurrence: US)
  Receive Date: 20190110
  Receipt Date: 20190411
  Transmission Date: 20190711
  Serious: Yes (Other)
  Sender: FDA-Public Use
  Company Number: US-REGENERON PHARMACEUTICALS, INC.-2019-10272

PATIENT

DRUGS (2)
  1. EYLEA [Suspect]
     Active Substance: AFLIBERCEPT
     Indication: CHOROIDAL NEOVASCULARISATION
     Dosage: 2 MG 0.05 ML, RIGHT EYE (OD), EVERY 4 WEEKS, LAST DOSE
     Route: 031
     Dates: start: 20181212, end: 20181212
  2. EYLEA [Suspect]
     Active Substance: AFLIBERCEPT
     Indication: NEOVASCULAR AGE-RELATED MACULAR DEGENERATION
     Dosage: 2 MG 0.05 ML, EVERY 4 WEEKS, RIGHT EYE (OD)
     Route: 031
     Dates: start: 20180823

REACTIONS (3)
  - Eye haemorrhage [Unknown]
  - Intraocular pressure increased [Unknown]
  - Macular scar [Not Recovered/Not Resolved]

NARRATIVE: CASE EVENT DATE: 20180823
